FAERS Safety Report 9658638 (Version 1)
Quarter: 2013Q4

REPORT INFORMATION
  Report Type: Spontaneous
  Country: US (occurrence: US)
  Receive Date: 20131030
  Receipt Date: 20131030
  Transmission Date: 20140711
  Serious: Yes (Disabling, Other)
  Sender: FDA-Public Use
  Company Number: US-NAPPMUNDI-USA-2011-0077842

PATIENT
  Age: 60 Year
  Sex: Female
  Weight: 62.59 kg

DRUGS (7)
  1. OXYCONTIN (NDA 22-272) [Suspect]
     Indication: PAIN
     Dosage: 20 MG, BID
     Dates: start: 201108
  2. GABAPENTIN [Suspect]
     Indication: OEDEMA
     Dosage: 100 MG, DAILY
     Route: 048
     Dates: start: 20110703
  3. GABAPENTIN [Suspect]
     Indication: PAIN
  4. PHENOBARBITAL [Concomitant]
     Indication: CONVULSION
     Dosage: 30 MG, QID
  5. DIAZEPAM [Concomitant]
     Indication: CONVULSION
     Dosage: 5 MG, QID
     Dates: start: 1970
  6. PROPANOLOL                         /00030001/ [Concomitant]
     Indication: PRODUCT USED FOR UNKNOWN INDICATION
     Dosage: 20 MG, QID
  7. CENTRUM SILVER                     /01292501/ [Concomitant]
     Indication: SUPPLEMENTATION THERAPY

REACTIONS (8)
  - Urticaria [Not Recovered/Not Resolved]
  - Insomnia [Not Recovered/Not Resolved]
  - Feeling abnormal [Not Recovered/Not Resolved]
  - Pruritus [Not Recovered/Not Resolved]
  - Unevaluable event [Not Recovered/Not Resolved]
  - Pallor [Not Recovered/Not Resolved]
  - Incoherent [Not Recovered/Not Resolved]
  - Oedema [Not Recovered/Not Resolved]
